FAERS Safety Report 6234754-9 (Version None)
Quarter: 2009Q2

REPORT INFORMATION
  Report Type: 
  Country: None (occurrence: None)
  Receive Date: 20090618
  Receipt Date: 20090617
  Transmission Date: 20091009
  Serious: Yes (Other)
  Sender: FDA-Public Use
  Company Number: JP-B.I. PHARMACEUTICALS,INC./RIDGEFIELD-2008-BP-09062NB

PATIENT
  Sex: Male
  Weight: 66 kg

DRUGS (4)
  1. MICARDIS [Suspect]
     Indication: HYPERTENSION
     Dosage: 80MG
     Route: 048
     Dates: start: 20060522
  2. CALBLOCK [Concomitant]
     Indication: HYPERTENSION
     Dosage: 16MG
     Route: 048
     Dates: start: 20061216
  3. ACTOS [Concomitant]
     Dosage: 15MG
     Route: 048
     Dates: start: 20060522
  4. OMEPRAL [Concomitant]
     Dosage: 20MG
     Route: 048
     Dates: start: 20061021, end: 20070209

REACTIONS (2)
  - COLON CANCER [None]
  - HYPERLIPIDAEMIA [None]
